FAERS Safety Report 5237909-5 (Version None)
Quarter: 2007Q1

REPORT INFORMATION
  Report Type: 
  Country: None (occurrence: None)
  Receive Date: 20070214
  Receipt Date: 20070202
  Transmission Date: 20070707
  Serious: Yes (Hospitalization)
  Sender: FDA-Public Use
  Company Number: FR-GILEAD-2006-0010246

PATIENT
  Sex: Male
  Weight: 47 kg

DRUGS (5)
  1. TRUVADA [Suspect]
     Indication: HIV INFECTION
     Route: 048
     Dates: start: 20060713
  2. KALETRA [Concomitant]
     Indication: HIV INFECTION
     Route: 048
     Dates: start: 20060713
  3. AZADOSE [Concomitant]
     Indication: PROPHYLAXIS
     Route: 048
     Dates: start: 20060521
  4. PENTACARINAT [Concomitant]
     Indication: PROPHYLAXIS
     Route: 065
     Dates: start: 20060621
  5. SPECIAFOLDINE [Concomitant]
     Indication: PROPHYLAXIS
     Route: 048
     Dates: start: 20060522

REACTIONS (1)
  - ANXIETY [None]
